FAERS Safety Report 5802035-0 (Version None)
Quarter: 2008Q3

REPORT INFORMATION
  Report Type: 
  Country: None (occurrence: None)
  Receive Date: 20080707
  Receipt Date: 20080626
  Transmission Date: 20090109
  Serious: Yes (Other)
  Sender: FDA-Public Use
  Company Number: JP-PFIZER INC-2008052710

PATIENT
  Age: 43 Year
  Sex: Female

DRUGS (12)
  1. UNASYN [Suspect]
     Indication: PNEUMONIA
     Dosage: DAILY DOSE:3GRAM
     Route: 042
  2. MINOMYCIN [Concomitant]
     Route: 042
  3. CLARITHROMYCIN [Concomitant]
     Route: 048
  4. MUCOSOLVAN [Concomitant]
     Route: 048
  5. MUCOSTA [Concomitant]
     Route: 048
  6. HOKUNALIN [Concomitant]
     Route: 062
     Dates: start: 20080616, end: 20080617
  7. COLDRIN [Concomitant]
     Route: 048
  8. NEOPHYLLIN [Concomitant]
     Route: 042
  9. MEPTIN [Concomitant]
     Route: 048
  10. GLYSENNID [Concomitant]
     Route: 048
  11. MAGNESIUM OXIDE [Concomitant]
     Route: 048
  12. I.V. SOLUTIONS [Concomitant]
     Route: 042

REACTIONS (1)
  - ANALGESIA [None]
